FAERS Safety Report 7382682-8 (Version None)
Quarter: 2011Q1

REPORT INFORMATION
  Report Type: 
  Country: None (occurrence: None)
  Receive Date: 20110329
  Receipt Date: 20110322
  Transmission Date: 20110831
  Serious: Yes (Death, Other)
  Sender: FDA-Public Use
  Company Number: US-MYLANLABS-2011S1005735

PATIENT
  Age: 53 Year
  Sex: Female
  Weight: 44 kg

DRUGS (5)
  1. FENTANYL-100 [Suspect]
     Dosage: Q 72 HOURS
     Route: 062
     Dates: start: 20090101, end: 20090101
  2. ANTIEPILEPTICS [Concomitant]
  3. FENTANYL-100 [Suspect]
     Indication: BACK PAIN
     Dosage: Q72HR
     Route: 062
     Dates: start: 20090101, end: 20090101
  4. FENTANYL-100 [Suspect]
     Dosage: Q 72 HOURS
     Route: 062
     Dates: start: 20090101, end: 20090101
  5. FENTANYL-100 [Suspect]
     Dosage: Q 72 HOURS
     Route: 062
     Dates: start: 20090101, end: 20090605

REACTIONS (9)
  - DRUG EFFECT INCREASED [None]
  - NAUSEA [None]
  - LOSS OF CONSCIOUSNESS [None]
  - DIARRHOEA [None]
  - DECREASED APPETITE [None]
  - HYPOTENSION [None]
  - SOMNOLENCE [None]
  - VOMITING [None]
  - WEIGHT DECREASED [None]
